FAERS Safety Report 10268335 (Version 1)
Quarter: 2014Q2

REPORT INFORMATION
  Report Type: Spontaneous
  Country: US (occurrence: US)
  Receive Date: 20140630
  Receipt Date: 20140630
  Transmission Date: 20141212
  Serious: No
  Sender: FDA-Public Use
  Company Number: US-BAYER-2014-097984

PATIENT
  Sex: Female
  Weight: 46.26 kg

DRUGS (8)
  1. ALEVE TABLET [Suspect]
     Indication: PAIN
     Dosage: 2 DF, BID
     Route: 048
  2. ALEVE TABLET [Suspect]
     Indication: PAIN
     Dosage: 1 DF, QD
     Route: 048
     Dates: end: 201406
  3. ALEVE CAPLET [Suspect]
     Indication: PAIN
     Dosage: 2 DF, BID
     Route: 048
  4. ALEVE CAPLET [Suspect]
     Indication: PAIN
     Dosage: 1 DF, QD
     Route: 048
     Dates: end: 201406
  5. GABAPENTIN [Concomitant]
  6. VITAMIN B COMPLEX [Concomitant]
  7. CALCIUM D [Concomitant]
  8. VITAMIN D [Concomitant]

REACTIONS (1)
  - Incorrect drug administration duration [None]
